FAERS Safety Report 5805746-6 (Version None)
Quarter: 2008Q3

REPORT INFORMATION
  Report Type: 
  Country: None (occurrence: None)
  Receive Date: 20080710
  Receipt Date: 20080702
  Transmission Date: 20090109
  Serious: Yes (Death, Hospitalization, Other)
  Sender: FDA-Public Use
  Company Number: FR-ELI_LILLY_AND_COMPANY-FR200804002750

PATIENT
  Sex: Male
  Weight: 100 kg

DRUGS (9)
  1. ZYPREXA [Suspect]
     Indication: SCHIZOPHRENIA
     Dosage: 10 MG, 2/D
     Route: 048
     Dates: start: 20030423, end: 20070509
  2. LOXAPINE HCL [Concomitant]
     Dosage: 100 MG, DAILY (1/D)
     Route: 048
  3. LOXAPINE HCL [Concomitant]
     Dosage: 50 MG, DAILY (1/D)
     Route: 048
     Dates: end: 20030401
  4. LEPTICUR [Concomitant]
     Dosage: 30 MG, DAILY (1/D)
     Route: 048
  5. LEPTICUR [Concomitant]
     Dosage: 20 MG, DAILY (1/D)
     Route: 048
  6. LEXOMIL [Concomitant]
     Dosage: 3 MG, DAILY (1/D)
     Route: 048
  7. LEXOMIL [Concomitant]
     Dosage: 6 MG, 2/D
     Route: 048
  8. LACTULOSE [Concomitant]
     Dosage: 2 G, DAILY (1/D)
     Route: 048
  9. TEGRETOL [Concomitant]
     Dosage: 200 MG, DAILY (1/D)
     Route: 048

REACTIONS (11)
  - CARDIAC ARREST [None]
  - CARDIAC CIRRHOSIS [None]
  - CONGESTIVE CARDIOMYOPATHY [None]
  - DIARRHOEA [None]
  - EJECTION FRACTION DECREASED [None]
  - HAEMATEMESIS [None]
  - ISCHAEMIC CARDIOMYOPATHY [None]
  - MITRAL VALVE INCOMPETENCE [None]
  - PULMONARY EMBOLISM [None]
  - PULMONARY INFARCTION [None]
  - TRICUSPID VALVE INCOMPETENCE [None]
